FAERS Safety Report 8232008-2 (Version None)
Quarter: 2012Q1

REPORT INFORMATION
  Report Type: 
  Country: None (occurrence: None)
  Receive Date: 20120323
  Receipt Date: 20120312
  Transmission Date: 20120608
  Serious: Yes (Hospitalization)
  Sender: FDA-Public Use
  Company Number: DE-TEVA-327610GER

PATIENT
  Sex: Male

DRUGS (1)
  1. ONDANSETRON [Suspect]
     Route: 048

REACTIONS (3)
  - MUSCLE SPASMS [None]
  - DYSKINESIA [None]
  - MYOCLONUS [None]
